FAERS Safety Report 5939462-7 (Version None)
Quarter: 2008Q4

REPORT INFORMATION
  Report Type: 
  Country: None (occurrence: None)
  Receive Date: 20081103
  Receipt Date: 20081029
  Transmission Date: 20090506
  Serious: Yes (Hospitalization, Other)
  Sender: FDA-Public Use
  Company Number: FI-WYE-G02477808

PATIENT
  Sex: Male
  Weight: 61 kg

DRUGS (1)
  1. REFACTO [Suspect]
     Indication: FACTOR VIII DEFICIENCY
     Route: 042
     Dates: start: 20010601, end: 20081017

REACTIONS (2)
  - FACTOR VIII INHIBITION [None]
  - MUSCLE HAEMORRHAGE [None]
